FAERS Safety Report 8147056-0 (Version None)
Quarter: 2012Q1

REPORT INFORMATION
  Report Type: 
  Country: None (occurrence: None)
  Receive Date: 20120218
  Receipt Date: 20110112
  Transmission Date: 20120608
  Serious: No
  Sender: FDA-Public Use
  Company Number: US-ALLERGAN-1100237US

PATIENT
  Sex: Female

DRUGS (1)
  1. BOTOX COSMETIC [Suspect]
     Indication: SKIN WRINKLING
     Dosage: 27 UNITS, SINGLE
     Route: 030
     Dates: start: 20100901, end: 20100901

REACTIONS (5)
  - EYE PAIN [None]
  - FOREIGN BODY SENSATION IN EYES [None]
  - EYE SWELLING [None]
  - EYELID PTOSIS [None]
  - EYELID PAIN [None]
